FAERS Safety Report 7641850-8 (Version None)
Quarter: 2011Q3

REPORT INFORMATION
  Report Type: 
  Country: None (occurrence: None)
  Receive Date: 20110728
  Receipt Date: 20110722
  Transmission Date: 20111222
  Serious: Yes (Death)
  Sender: FDA-Public Use
  Company Number: DE-ROCHE-787954

PATIENT
  Sex: Male
  Weight: 70 kg

DRUGS (1)
  1. CAPECITABINE [Suspect]
     Indication: RECTAL CANCER
     Dosage: LAST DOSE PRIOR TO SAE:30MAR2011.SCHEDULE:825 MG/M2 BID ON D 1-33EXCLUD WEEKENDS.
     Route: 048
     Dates: start: 20110221

REACTIONS (1)
  - PULMONARY EMBOLISM [None]
